FAERS Safety Report 13650985 (Version 1)
Quarter: 2017Q2

REPORT INFORMATION
  Report Type: Spontaneous
  Country: CH (occurrence: CH)
  Receive Date: 20170614
  Receipt Date: 20170614
  Transmission Date: 20170830
  Serious: Yes (Hospitalization)
  Sender: FDA-Public Use
  Company Number: CH-009507513-1706CHE005822

PATIENT
  Age: 71 Year
  Sex: Male

DRUGS (6)
  1. PANTOZOL [Concomitant]
     Active Substance: PANTOPRAZOLE SODIUM
     Dosage: 40 MG, QD (1-0-0)
     Dates: start: 20170414
  2. KEYTRUDA [Suspect]
     Active Substance: PEMBROLIZUMAB
     Indication: METASTATIC MALIGNANT MELANOMA
     Dosage: 200 MG, UNK; 30 MINUTE INFUSION
     Route: 041
     Dates: start: 20170426
  3. DEXAMETHASONE. [Concomitant]
     Active Substance: DEXAMETHASONE
     Dosage: 4 MG, BID (ALSO REPORTED AS 2-0-0)
     Dates: start: 20170414
  4. ORFIRIL [Concomitant]
     Active Substance: VALPROIC ACID
     Dosage: EXTENDED RELEASE (REPORTED AS LONG), 300 MG, TID (REPORTED AS 2-2-2)
     Dates: start: 20170414
  5. KEYTRUDA [Suspect]
     Active Substance: PEMBROLIZUMAB
     Dosage: 200 MG, UNK; 30 MINUTE INFUSION
     Route: 041
     Dates: start: 20170519
  6. PERINDOPRIL AMLODIPIN MEPHA [Concomitant]
     Dosage: 1 DF (5MG/5MG), ON DEMAND
     Dates: start: 20170414

REACTIONS (6)
  - Asthenia [Unknown]
  - C-reactive protein increased [Recovering/Resolving]
  - Chest X-ray abnormal [Unknown]
  - Chest pain [Unknown]
  - Fatigue [Unknown]
  - Pneumonitis [Unknown]

NARRATIVE: CASE EVENT DATE: 201705
